FAERS Safety Report 4837006-4 (Version None)
Quarter: 2005Q4

REPORT INFORMATION
  Report Type: 
  Country: None (occurrence: None)
  Receive Date: 20051121
  Receipt Date: 20051109
  Transmission Date: 20060501
  Serious: Yes (Hospitalization)
  Sender: FDA-Public Use
  Company Number: HQWYE301228OCT05

PATIENT
  Age: 77 Year
  Sex: Male

DRUGS (2)
  1. CORDARONE [Suspect]
     Indication: TACHYCARDIA
     Dosage: 172 TABLETS WITHIN 2 + 1/2 MONTH, ORAL
     Route: 048
     Dates: start: 20031101, end: 20040201
  2. COVERSYL (PERINDOPRIL ) [Concomitant]

REACTIONS (19)
  - ARTERIOVENOUS FISTULA [None]
  - BALANCE DISORDER [None]
  - BEDRIDDEN [None]
  - CONDITION AGGRAVATED [None]
  - DIABETES MELLITUS [None]
  - DIFFICULTY IN WALKING [None]
  - DRUG PRESCRIBING ERROR [None]
  - FATIGUE [None]
  - HYPERTHYROIDISM [None]
  - INFLAMMATION [None]
  - ISCHAEMIA [None]
  - MOVEMENT DISORDER [None]
  - NECROSIS [None]
  - PARALYSIS [None]
  - PHOTOSENSITIVITY REACTION [None]
  - SPINAL CORD DISORDER [None]
  - TACHYCARDIA [None]
  - WALDENSTROM'S MACROGLOBULINAEMIA [None]
  - WEIGHT DECREASED [None]
